FAERS Safety Report 6429859-3 (Version None)
Quarter: 2009Q4

REPORT INFORMATION
  Report Type: 
  Country: None (occurrence: None)
  Receive Date: 20091104
  Receipt Date: 20091104
  Transmission Date: 20100525
  Serious: Yes (Hospitalization)
  Sender: FDA-Public Use
  Company Number: None

PATIENT
  Age: 18 Year
  Sex: Female
  Weight: 66.4 kg

DRUGS (1)
  1. QUETIAPINE FUMARATE [Suspect]
     Indication: DEPRESSION
     Dosage: 625 MG ONCE PO
     Route: 048
     Dates: start: 20090702, end: 20090702

REACTIONS (4)
  - SEDATION [None]
  - SOMNOLENCE [None]
  - SUICIDE ATTEMPT [None]
  - TACHYCARDIA [None]
